FAERS Safety Report 11564569 (Version 1)
Quarter: 2015Q3

REPORT INFORMATION
  Report Type: Spontaneous
  Country: US (occurrence: US)
  Receive Date: 20150928
  Receipt Date: 20150928
  Transmission Date: 20151125
  Serious: Yes (Other)
  Sender: FDA-Public Use
  Company Number: US-PFIZER INC-2015318846

PATIENT
  Age: 59 Year
  Sex: Female
  Weight: 68 kg

DRUGS (6)
  1. LYRICA [Suspect]
     Active Substance: PREGABALIN
     Indication: INTERVERTEBRAL DISC DEGENERATION
  2. LYRICA [Suspect]
     Active Substance: PREGABALIN
     Indication: INTERVERTEBRAL DISC PROTRUSION
  3. LYRICA [Suspect]
     Active Substance: PREGABALIN
     Indication: FIBROMYALGIA
     Dosage: 100 MG, 1X/DAY
     Route: 048
     Dates: start: 2013
  4. VICODIN [Concomitant]
     Active Substance: ACETAMINOPHEN\HYDROCODONE BITARTRATE
     Indication: PAIN
     Dosage: TWO A DAY (TOOK ONE OF THESE AT LEAST EVERY FOUR HOURS; NOT AT THE SAME TIME)
     Route: 048
  5. LYRICA [Suspect]
     Active Substance: PREGABALIN
     Indication: NEURALGIA
     Dosage: 100 MG, 2X/DAY
     Route: 048
     Dates: start: 2014
  6. TRAMADOL. [Concomitant]
     Active Substance: TRAMADOL
     Indication: PAIN
     Dosage: TOOK ONE OF THESE AT LEAST EVERY FOUR HOURS ORALLY; NOT AT THE SAME TIME
     Route: 048

REACTIONS (4)
  - Arthropathy [Unknown]
  - Neuralgia [Unknown]
  - Radiculopathy [Unknown]
  - Carpal tunnel syndrome [Unknown]

NARRATIVE: CASE EVENT DATE: 2014
